FAERS Safety Report 13662799 (Version 1)
Quarter: 2017Q2

REPORT INFORMATION
  Report Type: Spontaneous
  Country: JP (occurrence: JP)
  Receive Date: 20170619
  Receipt Date: 20170619
  Transmission Date: 20170830
  Serious: Yes (Other)
  Sender: FDA-Public Use
  Company Number: JP-UCBSA-2017022887

PATIENT
  Sex: Male

DRUGS (2)
  1. E KEPPRA [Suspect]
     Active Substance: LEVETIRACETAM
     Dosage: 250 MG, 2X/DAY (BID)
     Route: 048
  2. E KEPPRA [Suspect]
     Active Substance: LEVETIRACETAM
     Indication: PRODUCT USED FOR UNKNOWN INDICATION
     Dosage: UNK
     Route: 048

REACTIONS (9)
  - Mobility decreased [Unknown]
  - Hypotension [Unknown]
  - Pruritus [Unknown]
  - Frequent bowel movements [Unknown]
  - Anaemia [Unknown]
  - Nutritional condition abnormal [Unknown]
  - Weight decreased [Unknown]
  - Neoplasm malignant [Unknown]
  - Diarrhoea [Unknown]
